FAERS Safety Report 5464558-6 (Version None)
Quarter: 2007Q3

REPORT INFORMATION
  Report Type: 
  Country: None (occurrence: None)
  Receive Date: 20070921
  Receipt Date: 20070912
  Transmission Date: 20080115
  Serious: Yes (Death)
  Sender: FDA-Public Use
  Company Number: US-GENENTECH-248040

PATIENT
  Age: 25 Year
  Sex: Male

DRUGS (1)
  1. RITUXAN [Suspect]
     Indication: ANAEMIA HAEMOLYTIC AUTOIMMUNE
     Dosage: UNK UNK, UNKNOWN
     Route: 065

REACTIONS (1)
  - PULMONARY HAEMORRHAGE [None]
